FAERS Safety Report 25011683 (Version 2)
Quarter: 2025Q1

REPORT INFORMATION
  Report Type: Spontaneous
  Country: RS (occurrence: RS)
  Receive Date: 20250226
  Receipt Date: 20250306
  Transmission Date: 20250409
  Serious: Yes (Death, Hospitalization, Other)
  Sender: MERCK SHARP & DOHME LLC
  Company Number: RS-009507513-2257890

PATIENT
  Age: 46 Year
  Sex: Female

DRUGS (3)
  1. KEYTRUDA [Suspect]
     Active Substance: PEMBROLIZUMAB
     Indication: Breast cancer
     Dates: start: 20240918
  2. CARBOPLATIN [Suspect]
     Active Substance: CARBOPLATIN
     Indication: Breast cancer
     Dates: start: 20240925
  3. TAXOL [Suspect]
     Active Substance: PACLITAXEL
     Indication: Breast cancer
     Dates: start: 20240925

REACTIONS (14)
  - Sudden cardiac death [Fatal]
  - Rash maculo-papular [Unknown]
  - Fatigue [Recovering/Resolving]
  - Myocardial injury [Unknown]
  - Hemiparesis [Unknown]
  - Myocarditis [Unknown]
  - Dysphagia [Recovering/Resolving]
  - Diplopia [Recovering/Resolving]
  - Dysarthria [Recovering/Resolving]
  - Soft tissue swelling [Recovering/Resolving]
  - Autoimmune hepatitis [Unknown]
  - Myasthenic syndrome [Unknown]
  - Palatal disorder [Recovering/Resolving]
  - Vocal cord paresis [Recovering/Resolving]

NARRATIVE: CASE EVENT DATE: 20240921
